FAERS Safety Report 6522869-7 (Version None)
Quarter: 2009Q4

REPORT INFORMATION
  Report Type: 
  Country: None (occurrence: None)
  Receive Date: 20091230
  Receipt Date: 20091225
  Transmission Date: 20100525
  Serious: Yes (Life-Threatening, Hospitalization)
  Sender: FDA-Public Use
  Company Number: RU-AMGEN-UK382433

PATIENT
  Sex: Female

DRUGS (2)
  1. ROMIPLOSTIM - BLINDED [Suspect]
     Indication: MYELODYSPLASTIC SYNDROME
     Route: 058
     Dates: start: 20091210, end: 20091217
  2. ROMIPLOSTIM - STUDY PROCEDURE [Suspect]

REACTIONS (1)
  - MALIGNANT NEOPLASM PROGRESSION [None]
